FAERS Safety Report 16685249 (Version 1)
Quarter: 2019Q3

REPORT INFORMATION
  Report Type: Spontaneous
  Country: CN (occurrence: CN)
  Receive Date: 20190808
  Receipt Date: 20190808
  Transmission Date: 20191004
  Serious: Yes (Disabling)
  Sender: FDA-Public Use
  Company Number: PHHY2019CN182064

PATIENT

DRUGS (3)
  1. PRANOPROFEN [Concomitant]
     Active Substance: PRANOPROFEN
     Indication: KERATITIS
     Dosage: 1 GTT, QID
     Route: 047
     Dates: start: 20190725, end: 20190728
  2. TOBRADEX [Suspect]
     Active Substance: DEXAMETHASONE\TOBRAMYCIN
     Indication: KERATITIS
     Dosage: 1 GTT, QID
     Route: 047
     Dates: start: 20190725, end: 20190728
  3. ERYTHROMYCIN. [Concomitant]
     Active Substance: ERYTHROMYCIN
     Indication: KERATITIS
     Dosage: 0.5 MG, QD (EXTERNAL USE)
     Route: 047
     Dates: start: 20190725, end: 20190728

REACTIONS (3)
  - Keratorhexis [Unknown]
  - Eye pain [Unknown]
  - Photophobia [Unknown]

NARRATIVE: CASE EVENT DATE: 20190728
